FAERS Safety Report 19458901 (Version 1)
Quarter: 2021Q2

REPORT INFORMATION
  Report Type: Spontaneous
  Country: UA (occurrence: UA)
  Receive Date: 20210624
  Receipt Date: 20210624
  Transmission Date: 20210717
  Serious: Yes (Other)
  Sender: FDA-Public Use
  Company Number: UA-TEVA-2021-UA-1925033

PATIENT
  Age: 55 Year
  Sex: Female

DRUGS (1)
  1. OLFEN [DICLOFENAC SODIUM] [Suspect]
     Active Substance: DICLOFENAC SODIUM
     Route: 065
     Dates: end: 2019

REACTIONS (1)
  - Rectal haemorrhage [Unknown]
